FAERS Safety Report 5925955-5 (Version None)
Quarter: 2008Q4

REPORT INFORMATION
  Report Type: 
  Country: None (occurrence: None)
  Receive Date: 20081021
  Receipt Date: 20081013
  Transmission Date: 20090506
  Serious: No
  Sender: FDA-Public Use
  Company Number: US-B.I. PHARMACEUTICALS,INC./RIDGEFIELD-2008-BP-14268BP

PATIENT
  Age: 67 Year
  Sex: Male

DRUGS (4)
  1. FLOMAX [Suspect]
     Indication: BENIGN PROSTATIC HYPERPLASIA
     Dosage: .8MG
     Dates: start: 20070701
  2. LISINOPRIL [Concomitant]
     Indication: HYPERTENSION
  3. NORVASC [Concomitant]
     Indication: HYPERTENSION
  4. ZOCOR [Concomitant]
     Indication: BLOOD CHOLESTEROL INCREASED

REACTIONS (2)
  - NOCTURIA [None]
  - RESIDUAL URINE [None]
